FAERS Safety Report 5333368-2 (Version None)
Quarter: 2007Q2

REPORT INFORMATION
  Report Type: 
  Country: None (occurrence: None)
  Receive Date: 20070524
  Receipt Date: 20070515
  Transmission Date: 20071010
  Serious: Yes (Death)
  Sender: FDA-Public Use
  Company Number: US-AMGEN-US220187

PATIENT
  Sex: Female
  Weight: 58.6 kg

DRUGS (1)
  1. PROCRIT [Suspect]
     Indication: MYELODYSPLASTIC SYNDROME
     Route: 065

REACTIONS (1)
  - DEATH [None]
